FAERS Safety Report 16577048 (Version 1)
Quarter: 2019Q3

REPORT INFORMATION
  Report Type: Spontaneous
  Country: US (occurrence: US)
  Receive Date: 20190716
  Receipt Date: 20190716
  Transmission Date: 20191004
  Serious: No
  Sender: FDA-Public Use
  Company Number: US-JNJFOC-20190719641

PATIENT
  Age: 13 Year
  Sex: Male

DRUGS (1)
  1. TYLENOL [Suspect]
     Active Substance: ACETAMINOPHEN
     Indication: PRODUCT USED FOR UNKNOWN INDICATION
     Dosage: TWO CAPLETS ONCE
     Route: 048
     Dates: start: 20190712, end: 20190712

REACTIONS (1)
  - Wrong product administered [Unknown]
